FAERS Safety Report 7741650-4 (Version None)
Quarter: 2011Q3

REPORT INFORMATION
  Report Type: 
  Country: None (occurrence: None)
  Receive Date: 20110912
  Receipt Date: 20110907
  Transmission Date: 20111222
  Serious: Yes (Life-Threatening, Hospitalization)
  Sender: FDA-Public Use
  Company Number: US-BRISTOL-MYERS SQUIBB COMPANY-16038739

PATIENT
  Age: 18 Year
  Sex: Male
  Weight: 57 kg

DRUGS (4)
  1. ABILIFY [Suspect]
     Indication: BIPOLAR DISORDER
     Dosage: INCREASED TO 30MG/PO/QD
     Route: 048
  2. LITHIUM [Concomitant]
  3. BENZTROPINE MESYLATE [Concomitant]
  4. LAMOTRIGINE [Concomitant]

REACTIONS (6)
  - AGGRESSION [None]
  - HEART RATE IRREGULAR [None]
  - AKATHISIA [None]
  - EXTRASYSTOLES [None]
  - OBSESSIVE THOUGHTS [None]
  - TREMOR [None]
